FAERS Safety Report 12406901 (Version 2)
Quarter: 2016Q2

REPORT INFORMATION
  Report Type: Spontaneous
  Country: US (occurrence: US)
  Receive Date: 20160526
  Receipt Date: 20160530
  Transmission Date: 20160815
  Serious: Yes (Hospitalization)
  Sender: FDA-Public Use
  Company Number: US-PFIZER INC-2016268555

PATIENT
  Age: 62 Year
  Sex: Female

DRUGS (2)
  1. RAPAMUNE [Suspect]
     Active Substance: SIROLIMUS
     Dosage: 2 MG, DAILY
     Route: 048
  2. RAPAMUNE [Suspect]
     Active Substance: SIROLIMUS
     Indication: IMMUNOSUPPRESSANT DRUG THERAPY
     Dosage: 3 MG, 1X/DAY
     Route: 048
     Dates: start: 2015

REACTIONS (7)
  - Tremor [Unknown]
  - Product use issue [Unknown]
  - Hip fracture [Recovering/Resolving]
  - Joint swelling [Unknown]
  - Hip fracture [Recovering/Resolving]
  - Intentional product misuse [Not Recovered/Not Resolved]
  - Peripheral swelling [Unknown]

NARRATIVE: CASE EVENT DATE: 201602
